FAERS Safety Report 14539669 (Version 1)
Quarter: 2018Q1

REPORT INFORMATION
  Report Type: Report from Study
  Country: GB (occurrence: GB)
  Receive Date: 20180216
  Receipt Date: 20180216
  Transmission Date: 20180509
  Serious: Yes (Other)
  Sender: FDA-Public Use
  Company Number: GB-TORRENT-00016085

PATIENT

DRUGS (2)
  1. LAMOTRIGINE. [Suspect]
     Active Substance: LAMOTRIGINE
     Indication: PRODUCT USED FOR UNKNOWN INDICATION
     Dosage: UNKNOWN
  2. LEVETIRACETAM. [Suspect]
     Active Substance: LEVETIRACETAM
     Indication: PRODUCT USED FOR UNKNOWN INDICATION
     Dosage: UNKNOWN

REACTIONS (9)
  - Abnormal behaviour [Unknown]
  - Fatigue [Unknown]
  - Depressed mood [Unknown]
  - Adverse drug reaction [Unknown]
  - Pyrexia [Unknown]
  - Disturbance in attention [Unknown]
  - Depression [Unknown]
  - Nausea [Unknown]
  - Headache [Unknown]
